FAERS Safety Report 9720533 (Version 3)
Quarter: 2013Q4

REPORT INFORMATION
  Report Type: Spontaneous
  Country: FR (occurrence: FR)
  Receive Date: 20131129
  Receipt Date: 20131212
  Transmission Date: 20140711
  Serious: Yes (Death, Hospitalization)
  Sender: FDA-Public Use
  Company Number: FR-ASTRAZENECA-2013SE79957

PATIENT
  Age: 30335 Day
  Sex: Female

DRUGS (5)
  1. ARIMIDEX [Suspect]
     Indication: BREAST CANCER
     Route: 048
     Dates: start: 2010, end: 20131005
  2. FUROSEMIDE [Suspect]
     Route: 048
     Dates: end: 20131005
  3. TEMERIT [Suspect]
     Route: 048
     Dates: end: 20131005
  4. COVERSYL [Suspect]
     Route: 048
     Dates: end: 20131005
  5. THYROXIN [Concomitant]

REACTIONS (12)
  - Chronic lymphocytic leukaemia [Fatal]
  - Leukaemic infiltration hepatic [Fatal]
  - Hepatitis [Fatal]
  - Cholangitis acute [Unknown]
  - Hypoalbuminaemia [Unknown]
  - Oedema peripheral [Unknown]
  - Prothrombin level decreased [Unknown]
  - Splenomegaly [Unknown]
  - Pyrexia [Unknown]
  - Hypoxia [Unknown]
  - Hepatic cirrhosis [Unknown]
  - Coagulation factor V level decreased [Unknown]
